FAERS Safety Report 4603472-2 (Version None)
Quarter: 2005Q2

REPORT INFORMATION
  Report Type: 
  Country: None (occurrence: None)
  Receive Date: 20050223
  Receipt Date: 20041112
  Transmission Date: 20051028
  Serious: No
  Sender: FDA-Public Use
  Company Number: 210475

PATIENT
  Age: 66 Year
  Sex: Male
  Weight: 71.2 kg

DRUGS (3)
  1. RAPTIVA [Suspect]
     Indication: PSORIASIS
     Dosage: 0.7 ML, 1/WEEK, SUBCUTANEOUS; 1 ML, 1/WEEK, SUBCUTANEOUS
     Route: 058
     Dates: start: 20040908, end: 20041004
  2. VALTREX [Concomitant]
  3. LORTAB (HYROCODONE BITARTRATE, ACETAMINOPHEN) [Concomitant]

REACTIONS (1)
  - PSORIASIS [None]
